FAERS Safety Report 4591372-6 (Version None)
Quarter: 2005Q1

REPORT INFORMATION
  Report Type: 
  Country: None (occurrence: None)
  Receive Date: 20050222
  Receipt Date: 20050210
  Transmission Date: 20050727
  Serious: Yes (Death)
  Sender: FDA-Public Use
  Company Number: 2004-11-0448

PATIENT
  Age: 69 Year
  Sex: Male
  Weight: 88.905 kg

DRUGS (1)
  1. INTENT TO TREAT - TEMOZOLOMIDE STUDY CAPSULES [Suspect]
     Indication: MALIGNANT MELANOMA

REACTIONS (1)
  - NO ADVERSE DRUG EFFECT [None]
